FAERS Safety Report 9851773 (Version 2)
Quarter: 2014Q1

REPORT INFORMATION
  Report Type: Other
  Country: IT (occurrence: IT)
  Receive Date: 20140129
  Receipt Date: 20140228
  Transmission Date: 20141002
  Serious: Yes (Hospitalization)
  Sender: FDA-Public Use
  Company Number: IT-SUN PHARMACEUTICAL INDUSTRIES LTD-2014SUN00099

PATIENT
  Sex: 0

DRUGS (6)
  1. OLANZAPINE 5 MG TABLET [Suspect]
     Indication: PSYCHOTIC DISORDER
     Dosage: 20 MG, QD
     Route: 048
     Dates: start: 20130203, end: 20130527
  2. OLANZAPINE 5 MG TABLET [Suspect]
     Dosage: UNK
     Route: 048
     Dates: start: 20130527
  3. LORAZEPAM [Suspect]
     Indication: PSYCHOTIC DISORDER
     Dosage: 2.5 MG, QD
     Route: 048
     Dates: start: 20130203, end: 20130527
  4. LORAZEPAM [Suspect]
     Dosage: UNK
     Route: 048
     Dates: start: 20130527
  5. MOVICOL [Concomitant]
  6. METFORMIN [Concomitant]

REACTIONS (2)
  - Hyponatraemia [Recovering/Resolving]
  - Coma [Recovering/Resolving]
